FAERS Safety Report 23408900 (Version 6)
Quarter: 2025Q4

REPORT INFORMATION
  Report Type: Spontaneous
  Country: CA (occurrence: CA)
  Receive Date: 20240117
  Receipt Date: 20251129
  Transmission Date: 20260118
  Serious: Yes (Hospitalization, Other)
  Sender: AUROBINDO
  Company Number: E2B_06528075

PATIENT
  Age: 35 Year
  Sex: Female

DRUGS (12)
  1. MIRTAZAPINE [Suspect]
     Active Substance: MIRTAZAPINE
     Indication: Product used for unknown indication
     Dosage: UNK
     Route: 065
  2. DUPILUMAB [Suspect]
     Active Substance: DUPILUMAB
     Indication: Asthma
     Dosage: UNK
     Route: 065
  3. FLUTICASONE FUROATE [Suspect]
     Active Substance: FLUTICASONE FUROATE
     Indication: Asthma
     Dosage: UNK
  4. FLUTICASONE FUROATE [Suspect]
     Active Substance: FLUTICASONE FUROATE
     Dosage: UNK
     Route: 050
  5. OMALIZUMAB [Suspect]
     Active Substance: OMALIZUMAB
     Indication: Asthma
     Dosage: 20 MILLIGRAM, ONCE A DAY
     Route: 065
     Dates: start: 2009
  6. PREDNISONE [Suspect]
     Active Substance: PREDNISONE
     Indication: Asthma
     Dosage: UNK
     Route: 065
  7. PREDNISONE [Suspect]
     Active Substance: PREDNISONE
     Dosage: 20 MILLIGRAM, ONCE A DAY
  8. TIOTROPIUM [Suspect]
     Active Substance: TIOTROPIUM
     Indication: Asthma
     Dosage: UNK
  9. TIOTROPIUM [Suspect]
     Active Substance: TIOTROPIUM
     Dosage: UNK
     Route: 065
  10. VILANTEROL [Suspect]
     Active Substance: VILANTEROL
     Indication: Asthma
     Dosage: UNK
  11. VILANTEROL [Suspect]
     Active Substance: VILANTEROL
     Dosage: UNK
     Route: 065
  12. OXYGEN [Suspect]
     Active Substance: OXYGEN
     Indication: Asthma
     Dosage: 3.0 LITER

REACTIONS (10)
  - Diabetes mellitus [Unknown]
  - Steroid diabetes [Unknown]
  - Gestational hypertension [Unknown]
  - Serotonin syndrome [Unknown]
  - Premature delivery [Unknown]
  - Live birth [Unknown]
  - Product ineffective [Unknown]
  - Exposure during pregnancy [Unknown]
  - Maternal exposure before pregnancy [Unknown]
  - Maternal exposure during pregnancy [Unknown]
